FAERS Safety Report 12434772 (Version 2)
Quarter: 2016Q3

REPORT INFORMATION
  Report Type: Report from Study
  Country: CA (occurrence: CA)
  Receive Date: 20160603
  Receipt Date: 20160729
  Transmission Date: 20161109
  Serious: No
  Sender: FDA-Public Use
  Company Number: CA-009507513-1606CAN001357

PATIENT
  Age: 51 Year
  Sex: Male

DRUGS (2)
  1. ZEPATIER [Suspect]
     Active Substance: ELBASVIR\GRAZOPREVIR
     Dosage: 1 TABLET, DAILY
     Route: 048
     Dates: start: 20160525, end: 20160727
  2. ZEPATIER [Suspect]
     Active Substance: ELBASVIR\GRAZOPREVIR
     Indication: HEPATITIS C
     Dosage: 1 TABLET, DAILY
     Route: 048
     Dates: start: 20160504, end: 20160523

REACTIONS (7)
  - Hair growth abnormal [Unknown]
  - Peripheral swelling [Recovering/Resolving]
  - Weight increased [Unknown]
  - Hyperhidrosis [Unknown]
  - Weight decreased [Unknown]
  - Drug dose omission [Unknown]
  - Pollakiuria [Unknown]

NARRATIVE: CASE EVENT DATE: 2016
